FAERS Safety Report 7801922 (Version 2)
Quarter: 2012Q4

REPORT INFORMATION
  Report Type: 
  Country: US (occurrence: US)
  Receive Date: 20110207
  Receipt Date: 20121001
  Transmission Date: 20130627
  Serious: Yes (Other)
  Sender: FDA-Public Use
  Company Number: US-ASTRAZENECA-2011SE05409

PATIENT
  Age: 43 Year
  Sex: Female

DRUGS (10)
  1. SEROQUEL XR [Suspect]
     Indication: BIPOLAR DISORDER
     Route: 048
  2. SEROQUEL XR [Suspect]
     Indication: BIPOLAR DISORDER
     Dosage: SEVERAL DOSE CHANGES
     Route: 048
  3. TEGRETOL [Concomitant]
  4. CLONAZEPAM [Concomitant]
  5. RANITIDINE [Concomitant]
  6. ZOLIPIDEM [Concomitant]
  7. VICODIN [Concomitant]
  8. LEVOXYL [Concomitant]
  9. SIMVASTATIN [Concomitant]
  10. CLARITIN [Concomitant]

REACTIONS (4)
  - Gastric ulcer haemorrhage [Unknown]
  - Thyroid disorder [Unknown]
  - Anxiety [Unknown]
  - Pain [Unknown]
